FAERS Safety Report 5047894-7 (Version None)
Quarter: 2006Q3

REPORT INFORMATION
  Report Type: 
  Country: None (occurrence: None)
  Receive Date: 20060711
  Receipt Date: 20060612
  Transmission Date: 20061208
  Serious: Yes (Hospitalization)
  Sender: FDA-Public Use
  Company Number: 2005-127269-NL

PATIENT
  Age: 89 Year
  Sex: Female

DRUGS (24)
  1. ADVAIR DISKUS 100/50 [Suspect]
     Indication: DRUG USE FOR UNKNOWN INDICATION
     Route: 055
  2. COREG [Suspect]
     Indication: DRUG USE FOR UNKNOWN INDICATION
     Route: 048
  3. ANCEF [Suspect]
     Indication: DRUG USE FOR UNKNOWN INDICATION
     Route: 065
  4. TYLENOL (CAPLET) [Suspect]
     Indication: DRUG USE FOR UNKNOWN INDICATION
  5. REMERON [Suspect]
     Indication: DEPRESSION
     Dosage: 15MG AT NIGHT
     Route: 048
     Dates: end: 20050315
  6. ULTRAM [Suspect]
     Indication: DRUG USE FOR UNKNOWN INDICATION
  7. DOCUSATE SODIUM [Suspect]
     Indication: DRUG USE FOR UNKNOWN INDICATION
  8. ASPIRIN [Suspect]
  9. PEPCID [Suspect]
     Indication: DRUG USE FOR UNKNOWN INDICATION
  10. LOVENOX [Suspect]
     Indication: DRUG USE FOR UNKNOWN INDICATION
  11. PREDNISONE [Suspect]
     Indication: DRUG USE FOR UNKNOWN INDICATION
  12. LASIX [Suspect]
     Indication: DRUG USE FOR UNKNOWN INDICATION
  13. ALDACTONE [Suspect]
     Indication: DRUG USE FOR UNKNOWN INDICATION
  14. KEFLEX [Suspect]
     Indication: DRUG USE FOR UNKNOWN INDICATION
  15. SLOW-MAG [Suspect]
     Indication: DRUG USE FOR UNKNOWN INDICATION
  16. PRO-BANTHINE [Suspect]
     Indication: DRUG USE FOR UNKNOWN INDICATION
  17. BEXTRA [Suspect]
     Indication: DRUG USE FOR UNKNOWN INDICATION
  18. COZAAR [Suspect]
     Indication: DRUG USE FOR UNKNOWN INDICATION
  19. NORVASC [Suspect]
     Indication: DRUG USE FOR UNKNOWN INDICATION
  20. DARVOCET [Suspect]
     Indication: DRUG USE FOR UNKNOWN INDICATION
  21. DUONEB [Suspect]
     Indication: DRUG USE FOR UNKNOWN INDICATION
     Dates: end: 20050315
  22. EFFEXOR XR [Suspect]
     Indication: DRUG USE FOR UNKNOWN INDICATION
     Dosage: 225MG PER DAY
     Dates: end: 20050315
  23. TRAZODONE HCL [Suspect]
     Indication: DRUG USE FOR UNKNOWN INDICATION
  24. FLUTICASONE PROPIONATE [Suspect]
     Route: 055

REACTIONS (3)
  - HIP FRACTURE [None]
  - HYPONATRAEMIA [None]
  - POSTOPERATIVE INFECTION [None]
